FAERS Safety Report 9357615 (Version 1)
Quarter: 2013Q2

REPORT INFORMATION
  Report Type: Spontaneous
  Country: GB (occurrence: None)
  Receive Date: 20130617
  Receipt Date: 20130617
  Transmission Date: 20140414
  Serious: Yes (Other)
  Sender: FDA-Public Use
  Company Number: THQ2013A04427

PATIENT
  Age: 29 Year
  Sex: Male

DRUGS (2)
  1. LANSOPRAZOLE (LANSOPRAZOLE) [Suspect]
     Indication: PRODUCT USED FOR UNKNOWN INDICATION
     Dates: start: 20130222, end: 20130418
  2. KETOCONAZOLE [Concomitant]

REACTIONS (2)
  - Urinary incontinence [None]
  - Back pain [None]
